FAERS Safety Report 5725860-3 (Version None)
Quarter: 2008Q2

REPORT INFORMATION
  Report Type: 
  Country: None (occurrence: None)
  Receive Date: 20080429
  Receipt Date: 20080414
  Transmission Date: 20081010
  Serious: Yes (Death)
  Sender: FDA-Public Use
  Company Number: 2008S1004400

PATIENT
  Age: 43 Year
  Sex: Female

DRUGS (11)
  1. ALBUTEROL [Suspect]
     Indication: DRUG USE FOR UNKNOWN INDICATION
  2. GABAPENTIN [Suspect]
  3. QUETIAPINE FUMARATE [Suspect]
  4. BETA BLOCKING AGENTS [Suspect]
  5. BUPROPION HCL [Suspect]
  6. FLUOXETINE [Suspect]
  7. SPIRONOLACTONE [Suspect]
  8. FUROSEMIDE [Suspect]
  9. NAPROXEN [Suspect]
  10. COCAINE [Suspect]
  11. THYROID PREPARATIONS [Suspect]

REACTIONS (1)
  - DEATH [None]
